FAERS Safety Report 9735324 (Version 1)
Quarter: 2013Q4

REPORT INFORMATION
  Report Type: Spontaneous
  Country: BR (occurrence: BR)
  Receive Date: 20131206
  Receipt Date: 20131206
  Transmission Date: 20140711
  Serious: Yes (Other)
  Sender: FDA-Public Use
  Company Number: BR-009507513-1311BRA012534

PATIENT
  Age: 53 Year
  Sex: Male
  Weight: 61 kg

DRUGS (4)
  1. LOSARTAN POTASSIUM [Suspect]
     Indication: HYPERTENSION
     Dosage: 50 MG, QAM
     Route: 048
  2. ATENOLOL [Concomitant]
     Indication: HYPERTENSION
     Dosage: 50 MG, QAM
     Route: 048
  3. INDAPEN [Concomitant]
     Indication: HYPERTENSION
     Dosage: 1 DF, QAM
     Route: 048
  4. OMEPRAZOLE [Concomitant]

REACTIONS (3)
  - Prostatic operation [Unknown]
  - Prostate examination abnormal [Unknown]
  - Hepatitis C [Not Recovered/Not Resolved]
